FAERS Safety Report 7937782-8 (Version None)
Quarter: 2011Q4

REPORT INFORMATION
  Report Type: 
  Country: None (occurrence: None)
  Receive Date: 20111123
  Receipt Date: 20111114
  Transmission Date: 20120403
  Serious: Yes (Hospitalization)
  Sender: FDA-Public Use
  Company Number: US-ASTRAZENECA-2010SE33590

PATIENT
  Age: 55 Year
  Sex: Female
  Weight: 54.4 kg

DRUGS (8)
  1. NEXIUM [Concomitant]
  2. PROZAC [Concomitant]
  3. SEROQUEL [Suspect]
     Indication: ANXIETY
     Route: 048
  4. CARDIZEM [Concomitant]
  5. SEROQUEL [Suspect]
     Indication: PANIC ATTACK
     Route: 048
  6. TENORMIN [Concomitant]
  7. NEURONTIN [Concomitant]
  8. SEROQUEL [Suspect]
     Indication: INSOMNIA
     Route: 048

REACTIONS (8)
  - DRUG EFFECT DECREASED [None]
  - MENTAL DISORDER [None]
  - GASTRIC ULCER HAEMORRHAGE [None]
  - INSOMNIA [None]
  - DRUG DOSE OMISSION [None]
  - RENAL FAILURE [None]
  - CRYING [None]
  - OFF LABEL USE [None]
